FAERS Safety Report 25273698 (Version 1)
Quarter: 2025Q2

REPORT INFORMATION
  Report Type: Spontaneous
  Country: US (occurrence: US)
  Receive Date: 20250506
  Receipt Date: 20250506
  Transmission Date: 20250716
  Serious: No
  Sender: MARIUS PHARMACEUTICALS
  Company Number: US-MARIUS PHARMACEUTICALS, LLC-2025US000691

PATIENT

DRUGS (6)
  1. KYZATREX [Suspect]
     Active Substance: TESTOSTERONE UNDECANOATE
     Indication: Testicular failure
     Dosage: 2 CAPSULES, BID
     Route: 048
     Dates: end: 20250221
  2. PROPRANOLOL [Concomitant]
     Active Substance: PROPRANOLOL HYDROCHLORIDE
  3. WEGOVY [Concomitant]
     Active Substance: SEMAGLUTIDE
  4. TRAZODONE [Concomitant]
     Active Substance: TRAZODONE HYDROCHLORIDE
  5. ANASTROZOLE [Concomitant]
     Active Substance: ANASTROZOLE
  6. FLUOXETINE [Concomitant]
     Active Substance: FLUOXETINE HYDROCHLORIDE

REACTIONS (1)
  - Diplopia [Unknown]
